FAERS Safety Report 6145759-0 (Version None)
Quarter: 2009Q2

REPORT INFORMATION
  Report Type: 
  Country: None (occurrence: None)
  Receive Date: 20090406
  Receipt Date: 20090406
  Transmission Date: 20091009
  Serious: Yes (Other)
  Sender: FDA-Public Use
  Company Number: None

PATIENT
  Sex: Male

DRUGS (1)
  1. DILANTIN 100MG (MANFU PIZER (P-D) [Suspect]
     Indication: CONVULSION
     Dosage: 300MG ONCE DAILY PO
     Route: 048
     Dates: start: 20090320, end: 20090404

REACTIONS (1)
  - TREATMENT FAILURE [None]
